FAERS Safety Report 25011662 (Version 2)
Quarter: 2025Q1

REPORT INFORMATION
  Report Type: Report from Study
  Country: CA (occurrence: CA)
  Receive Date: 20250226
  Receipt Date: 20250313
  Transmission Date: 20250408
  Serious: Yes (Hospitalization, Other)
  Sender: TAKEDA
  Company Number: CA-TAKEDA-2024TUS050424

PATIENT
  Sex: Male

DRUGS (16)
  1. HUMAN IMMUNOGLOBULIN G [Suspect]
     Active Substance: HUMAN IMMUNOGLOBULIN G
     Indication: Secondary immunodeficiency
     Dosage: UNK UNK, 1/WEEK
     Dates: start: 20240424
  2. HUMAN IMMUNOGLOBULIN G [Suspect]
     Active Substance: HUMAN IMMUNOGLOBULIN G
     Indication: Immune thrombocytopenia
     Dosage: 20 GRAM, 1/WEEK
  3. HUMAN IMMUNOGLOBULIN G [Suspect]
     Active Substance: HUMAN IMMUNOGLOBULIN G
  4. HUMAN IMMUNOGLOBULIN G [Suspect]
     Active Substance: HUMAN IMMUNOGLOBULIN G
     Dosage: 20 GRAM, 1/WEEK
  5. HUMAN IMMUNOGLOBULIN G [Suspect]
     Active Substance: HUMAN IMMUNOGLOBULIN G
     Dosage: UNK UNK, 1/WEEK
  6. HUMAN IMMUNOGLOBULIN G [Suspect]
     Active Substance: HUMAN IMMUNOGLOBULIN G
     Dosage: 20 GRAM, 1/WEEK
  7. HUMAN IMMUNOGLOBULIN G [Suspect]
     Active Substance: HUMAN IMMUNOGLOBULIN G
     Dosage: 20 GRAM, 1/WEEK
  8. LEVOTHYROXINE [Concomitant]
     Active Substance: LEVOTHYROXINE
  9. TESTOSTERONE [Concomitant]
     Active Substance: TESTOSTERONE
  10. LABETALOL [Concomitant]
     Active Substance: LABETALOL
  11. INDAPAMIDE [Concomitant]
     Active Substance: INDAPAMIDE
  12. COLCHICINE [Concomitant]
     Active Substance: COLCHICINE
  13. GABAPENTIN [Concomitant]
     Active Substance: GABAPENTIN
  14. HYDROMORPHONE [Concomitant]
     Active Substance: HYDROMORPHONE
  15. METFORMIN [Concomitant]
     Active Substance: METFORMIN HYDROCHLORIDE
  16. TYLENOL [Concomitant]
     Active Substance: ACETAMINOPHEN

REACTIONS (10)
  - Peripheral swelling [Unknown]
  - Syncope [Unknown]
  - Dermatitis contact [Unknown]
  - Rash macular [Unknown]
  - Contusion [Unknown]
  - Infusion site bruising [Not Recovered/Not Resolved]
  - Infusion site erythema [Not Recovered/Not Resolved]
  - Pain [Unknown]
  - Infusion site pain [Not Recovered/Not Resolved]
  - Localised infection [Not Recovered/Not Resolved]
